FAERS Safety Report 8127334-1 (Version None)
Quarter: 2012Q1

REPORT INFORMATION
  Report Type: 
  Country: None (occurrence: None)
  Receive Date: 20120210
  Receipt Date: 20120201
  Transmission Date: 20120608
  Serious: Yes (Death, Other)
  Sender: FDA-Public Use
  Company Number: US-BRISTOL-MYERS SQUIBB COMPANY-16382384

PATIENT
  Age: 41 Year
  Sex: Male

DRUGS (5)
  1. CEFEPIME [Suspect]
  2. ETOPOSIDE [Suspect]
     Indication: BURKITT'S LYMPHOMA
     Route: 048
  3. LEVOFLOXACIN [Suspect]
  4. VANCOMYCIN [Suspect]
  5. DOXORUBICIN HCL [Suspect]
     Indication: BURKITT'S LYMPHOMA

REACTIONS (3)
  - ADENOVIRAL HEPATITIS [None]
  - DIARRHOEA [None]
  - WHITE BLOOD CELL COUNT DECREASED [None]
